FAERS Safety Report 17450935 (Version 1)
Quarter: 2020Q1

REPORT INFORMATION
  Report Type: Spontaneous
  Country: US (occurrence: US)
  Receive Date: 20200222
  Receipt Date: 20200222
  Transmission Date: 20200409
  Serious: Yes (Other)
  Sender: FDA-Public Use
  Company Number: None

PATIENT
  Age: 60 Year
  Sex: Female
  Weight: 67.5 kg

DRUGS (10)
  1. PROBIOTIC [Concomitant]
     Active Substance: PROBIOTICS NOS
  2. LITHIUM. [Concomitant]
     Active Substance: LITHIUM
  3. SEROQUEL 300MG [Suspect]
     Active Substance: QUETIAPINE FUMARATE
     Indication: BIPOLAR DISORDER
  4. TOPAMAX [Concomitant]
     Active Substance: TOPIRAMATE
  5. LAMICTOL [Concomitant]
  6. HYDROXOZINE [Concomitant]
  7. ZOFRAN [Concomitant]
     Active Substance: ONDANSETRON HYDROCHLORIDE
  8. MULTIVITAMIN [Concomitant]
     Active Substance: VITAMINS
  9. LEVITHORXOZINE [Concomitant]
  10. CLONODINE [Concomitant]
     Active Substance: CLONIDINE

REACTIONS (5)
  - Decreased appetite [None]
  - Vomiting [None]
  - Hallucination [None]
  - Diarrhoea [None]
  - Insomnia [None]

NARRATIVE: CASE EVENT DATE: 20200202
